FAERS Safety Report 4674327-2 (Version None)
Quarter: 2005Q2

REPORT INFORMATION
  Report Type: 
  Country: None (occurrence: None)
  Receive Date: 20050524
  Receipt Date: 20050518
  Transmission Date: 20051028
  Serious: Yes (Hospitalization)
  Sender: FDA-Public Use
  Company Number: US-2005-003875

PATIENT
  Age: 42 Year
  Sex: Female

DRUGS (2)
  1. BETASERON [Suspect]
     Indication: SECONDARY PROGRESSIVE MULTIPLE SCLEROSIS
     Dosage: SUBCUTANEOUS
     Route: 058
     Dates: start: 19980414, end: 20050301
  2. WELLBUTRIN [Suspect]
     Indication: DELUSION
     Dates: start: 20050301

REACTIONS (1)
  - DELUSION [None]
